FAERS Safety Report 7029388-2 (Version None)
Quarter: 2010Q3

REPORT INFORMATION
  Report Type: 
  Country: None (occurrence: None)
  Receive Date: 20100920
  Receipt Date: 20091201
  Transmission Date: 20110219
  Serious: Yes (Other)
  Sender: FDA-Public Use
  Company Number: 2009263203

PATIENT

DRUGS (3)
  1. DILANTIN-125 [Suspect]
     Indication: CONVULSION
  2. KEPPRA [Suspect]
     Indication: CONVULSION
  3. DEPAKOTE [Suspect]
     Indication: CONVULSION

REACTIONS (1)
  - CONVULSION [None]
